FAERS Safety Report 12203977 (Version 2)
Quarter: 2016Q1

REPORT INFORMATION
  Report Type: Spontaneous
  Country: None (occurrence: BR)
  Receive Date: 20160323
  Receipt Date: 20160330
  Transmission Date: 20160526
  Serious: Yes (Other)
  Sender: FDA-Public Use
  Company Number: BR-MERCK KGAA-1049485

PATIENT

DRUGS (1)
  1. NOVOTHYROX [Suspect]
     Active Substance: LEVOTHYROXINE SODIUM

REACTIONS (31)
  - Malaise [None]
  - Asthenia [None]
  - Dyspnoea [None]
  - Hyperhidrosis [None]
  - Vomiting [None]
  - Incorrect dose administered [None]
  - Headache [None]
  - Pain [None]
  - Homicidal ideation [None]
  - Nasopharyngitis [None]
  - Throat irritation [None]
  - Mass [None]
  - Head discomfort [None]
  - Drug-induced liver injury [None]
  - Alopecia [None]
  - Bradyphrenia [None]
  - Dry throat [None]
  - Disturbance in attention [None]
  - Fungal infection [None]
  - Feeling drunk [None]
  - Euphoric mood [None]
  - Feeling abnormal [None]
  - Chest discomfort [None]
  - Cold sweat [None]
  - Speech disorder [None]
  - Pruritus [None]
  - Dizziness [None]
  - Menstrual disorder [None]
  - Blood cholesterol increased [None]
  - Dysgeusia [None]
  - Nervousness [None]
